FAERS Safety Report 13192590 (Version 1)
Quarter: 2017Q1

REPORT INFORMATION
  Report Type: Spontaneous
  Country: BR (occurrence: BR)
  Receive Date: 20170207
  Receipt Date: 20170207
  Transmission Date: 20170428
  Serious: Yes (Hospitalization)
  Sender: FDA-Public Use
  Company Number: BR-009507513-1702BRA000485

PATIENT
  Age: 38 Year
  Sex: Female
  Weight: 65 kg

DRUGS (3)
  1. NUVARING [Suspect]
     Active Substance: ETHINYL ESTRADIOL\ETONOGESTREL
     Indication: CONTRACEPTION
     Dosage: UNK
     Route: 067
     Dates: start: 201507, end: 20170131
  2. NUVARING [Suspect]
     Active Substance: ETHINYL ESTRADIOL\ETONOGESTREL
     Indication: MENSTRUAL CYCLE MANAGEMENT
  3. MINERALS (UNSPECIFIED) (+) VITAMINS (UNSPECIFIED) [Concomitant]
     Dosage: 1 TABLET DAILY
     Route: 048
     Dates: start: 201408

REACTIONS (4)
  - Plastic surgery [Recovered/Resolved]
  - Product use issue [Unknown]
  - Abnormal withdrawal bleeding [Not Recovered/Not Resolved]
  - Skin cosmetic procedure [Recovered/Resolved]

NARRATIVE: CASE EVENT DATE: 201507
